FAERS Safety Report 6708833-3 (Version None)
Quarter: 2010Q2

REPORT INFORMATION
  Report Type: 
  Country: None (occurrence: None)
  Receive Date: 20100503
  Receipt Date: 20100503
  Transmission Date: 20101027
  Serious: Yes (Other)
  Sender: FDA-Public Use
  Company Number: None

PATIENT
  Age: 46 Year
  Sex: Female
  Weight: 52.6173 kg

DRUGS (2)
  1. TREE POLLEN ALLERGY TREATMENT HOMEOPATHIC CONCOCTION BIOALLERS [Suspect]
     Indication: SEASONAL ALLERGY
     Dosage: 15 DROPS DAILY SL 5-6X 04/01-04/14
     Route: 060
     Dates: start: 20100415, end: 20100418
  2. TREE POLLEN ALLERGY TREATMENT HOMEOPATHIC CONCOCTION BIOALLERS [Suspect]
     Indication: SEASONAL ALLERGY
     Dosage: 15 DROPS DAILY SL 5-6X 04/01-04/14
     Route: 060
     Dates: start: 20100327

REACTIONS (2)
  - DERMATITIS [None]
  - URTICARIA [None]
